FAERS Safety Report 10052877 (Version 2)
Quarter: 2014Q2

REPORT INFORMATION
  Report Type: Report from Study
  Country: US (occurrence: US)
  Receive Date: 20140402
  Receipt Date: 20140402
  Transmission Date: 20141212
  Serious: Yes (Death, Hospitalization)
  Sender: FDA-Public Use
  Company Number: US-ACTELION-A-US2014-96126

PATIENT
  Age: 80 Year
  Sex: Male

DRUGS (7)
  1. MACITENTAN [Suspect]
     Indication: PULMONARY HYPERTENSION
     Dosage: 10 MG, UNK
     Route: 048
     Dates: start: 20140212, end: 20140314
  2. LASIX [Concomitant]
     Dosage: 40 MG, UNK
  3. DILTIAZEM CD [Concomitant]
     Dosage: 240 MG, UNK
  4. SPIRIVA HANDIHALER [Concomitant]
  5. INSULIN [Concomitant]
  6. ASA [Concomitant]
     Dosage: 81 MG, UNK
  7. OXYGEN [Concomitant]

REACTIONS (5)
  - Pulseless electrical activity [Fatal]
  - Pulmonary hypertension [Unknown]
  - Dyspnoea [Unknown]
  - Urine output decreased [Unknown]
  - No therapeutic response [Not Recovered/Not Resolved]
